FAERS Safety Report 10152405 (Version 1)
Quarter: 2014Q2

REPORT INFORMATION
  Report Type: Spontaneous
  Country: MT (occurrence: MT)
  Receive Date: 20140505
  Receipt Date: 20140505
  Transmission Date: 20141212
  Serious: Yes (Disabling)
  Sender: FDA-Public Use
  Company Number: MT-SA-2014SA053167

PATIENT
  Age: 70 Year
  Sex: Female

DRUGS (3)
  1. CLEXANE [Suspect]
     Indication: PULMONARY EMBOLISM
     Route: 058
     Dates: start: 20131001, end: 20131130
  2. CARBOPLATIN [Concomitant]
     Indication: OVARIAN CANCER
     Dosage: AUC 5 DAILY DOSE
     Route: 042
  3. PACLITAXEL [Concomitant]
     Indication: OVARIAN CANCER
     Route: 042

REACTIONS (4)
  - Abdominal wall abscess [Recovered/Resolved]
  - Purulent discharge [Recovered/Resolved]
  - Pain [Recovered/Resolved]
  - Erythema [Recovered/Resolved]
